FAERS Safety Report 6806813-0 (Version None)
Quarter: 2010Q2

REPORT INFORMATION
  Report Type: 
  Country: None (occurrence: None)
  Receive Date: 20100629
  Receipt Date: 20080730
  Transmission Date: 20101027
  Serious: No
  Sender: FDA-Public Use
  Company Number: US-PFIZER INC-2008038718

PATIENT
  Age: 57 Year
  Sex: Female

DRUGS (1)
  1. ZYVOX [Suspect]
     Indication: DIABETIC FOOT INFECTION
     Dates: start: 20080101

REACTIONS (4)
  - DIARRHOEA [None]
  - FATIGUE [None]
  - IRRITABILITY [None]
  - OEDEMA PERIPHERAL [None]
